FAERS Safety Report 14688060 (Version 11)
Quarter: 2019Q1

REPORT INFORMATION
  Report Type: Spontaneous
  Country: US (occurrence: US)
  Receive Date: 20180328
  Receipt Date: 20190327
  Transmission Date: 20190417
  Serious: No
  Sender: FDA-Public Use
  Company Number: US-PFIZER INC-2018126801

PATIENT
  Age: 56 Year
  Sex: Female
  Weight: 91 kg

DRUGS (7)
  1. VALACYCLOVIR HCL [Concomitant]
     Active Substance: VALACYCLOVIR HYDROCHLORIDE
     Indication: STOMATITIS
     Dosage: 500 MG, 1X/DAY
     Route: 048
  2. IBRANCE [Suspect]
     Active Substance: PALBOCICLIB
     Indication: BREAST CANCER METASTATIC
     Dosage: 125 MG, CYCLIC (ONCE A DAY FOR 21 DAYS, 7 DAYS OFF)
     Route: 048
     Dates: start: 201703
  3. EFFEXOR [Concomitant]
     Active Substance: VENLAFAXINE HYDROCHLORIDE
     Indication: HOT FLUSH
     Dosage: 150 MG, 1X/DAY
     Route: 048
     Dates: start: 2017
  4. VALIUM [Concomitant]
     Active Substance: DIAZEPAM
     Indication: VERTIGO
     Dosage: 10 MG, 1X/DAY
     Route: 048
     Dates: end: 20181116
  5. VALIUM [Concomitant]
     Active Substance: DIAZEPAM
     Indication: TINNITUS
  6. IBRANCE [Suspect]
     Active Substance: PALBOCICLIB
     Dosage: 100 MG, CYCLIC (21 DAYS AND THEN 7 DAYS OFF)
     Route: 048
     Dates: start: 20170325
  7. LETROZOLE. [Suspect]
     Active Substance: LETROZOLE
     Indication: HORMONE SUPPRESSION THERAPY
     Dosage: 2.5 MG, DAILY
     Route: 048
     Dates: start: 20170325

REACTIONS (22)
  - Fatigue [Unknown]
  - Onychalgia [Recovered/Resolved]
  - Feeling abnormal [Unknown]
  - Stress [Unknown]
  - Weight increased [Not Recovered/Not Resolved]
  - Condition aggravated [Not Recovered/Not Resolved]
  - Disease recurrence [Recovered/Resolved]
  - Pain [Unknown]
  - Oral herpes [Not Recovered/Not Resolved]
  - Amnesia [Unknown]
  - Hormone level abnormal [Unknown]
  - Weight decreased [Unknown]
  - Hot flush [Unknown]
  - Anaemia [Recovered/Resolved]
  - Blood iron decreased [Unknown]
  - Dysgeusia [Recovered/Resolved]
  - Depression [Unknown]
  - Neoplasm progression [Unknown]
  - Visual impairment [Unknown]
  - Hypersomnia [Not Recovered/Not Resolved]
  - Somnolence [Unknown]
  - Onychomadesis [Recovered/Resolved]

NARRATIVE: CASE EVENT DATE: 201703
